FAERS Safety Report 25897331 (Version 1)
Quarter: 2025Q4

REPORT INFORMATION
  Report Type: Spontaneous
  Country: VE (occurrence: None)
  Receive Date: 20251007
  Receipt Date: 20251007
  Transmission Date: 20260117
  Serious: Yes (Other)
  Sender: FDA-CTU
  Company Number: None

PATIENT
  Age: 50 Year
  Sex: Female

DRUGS (10)
  1. RANITIDINE [Suspect]
     Active Substance: RANITIDINE
     Indication: Nausea
     Dosage: OTHER QUANTITY : 1 INJECTION(S);?FREQUENCY : DAILY;?
     Route: 030
     Dates: start: 20250410, end: 20250610
  2. RANITIDINE [Suspect]
     Active Substance: RANITIDINE
     Indication: Cough
  3. RANITIDINE [Suspect]
     Active Substance: RANITIDINE
     Indication: Cough
  4. RANITIDINE [Suspect]
     Active Substance: RANITIDINE
     Indication: Choking sensation
  5. RANITIDINE [Suspect]
     Active Substance: RANITIDINE
     Indication: Choking sensation
  6. RANITIDINE [Suspect]
     Active Substance: RANITIDINE
     Indication: Abdominal pain upper
  7. RANITIDINE [Suspect]
     Active Substance: RANITIDINE
     Indication: Abdominal pain upper
  8. RANITIDINE [Suspect]
     Active Substance: RANITIDINE
     Indication: Flatulence
  9. RANITIDINE [Suspect]
     Active Substance: RANITIDINE
     Indication: Flatulence
  10. METOCLOPRAMIDE [Suspect]
     Active Substance: METOCLOPRAMIDE

REACTIONS (8)
  - Paraesthesia [None]
  - Injection site pain [None]
  - Rash [None]
  - Urticaria [None]
  - Erythema [None]
  - Pruritus [None]
  - Abdominal pain upper [None]
  - Tremor [None]

NARRATIVE: CASE EVENT DATE: 20250510
